FAERS Safety Report 4681193-8 (Version None)
Quarter: 2005Q2

REPORT INFORMATION
  Report Type: 
  Country: None (occurrence: None)
  Receive Date: 20050602
  Receipt Date: 20050602
  Transmission Date: 20051028
  Serious: No
  Sender: FDA-Public Use
  Company Number: None

PATIENT
  Sex: Male
  Weight: 78.01 kg

DRUGS (4)
  1. CISPLATIN [Suspect]
     Indication: NEOPLASM MALIGNANT
     Dosage: 100 MG/M2 ON DAYS 1, 22 AND 43
     Dates: start: 20050328
  2. RADIATION [Suspect]
     Dosage: ARM #1 STANDARD FRACTIONING (SFX): 70 GY/35 FX FOR 7 WEEKS PLUS CISPLATIN
  3. DEXAMETHASONE [Concomitant]
  4. DOLASETRON [Concomitant]

REACTIONS (5)
  - ANAEMIA [None]
  - ASTHENIA [None]
  - CHILLS [None]
  - FEBRILE NEUTROPENIA [None]
  - TACHYCARDIA [None]
